FAERS Safety Report 25508462 (Version 3)
Quarter: 2025Q3

REPORT INFORMATION
  Report Type: Spontaneous
  Country: JP (occurrence: JP)
  Receive Date: 20250703
  Receipt Date: 20250820
  Transmission Date: 20251020
  Serious: Yes (Hospitalization, Other)
  Sender: GLAXOSMITHKLINE
  Company Number: JP-GSK-JP2025JPN080673

PATIENT
  Age: 84 Year
  Sex: Female

DRUGS (1)
  1. DAPRODUSTAT [Suspect]
     Active Substance: DAPRODUSTAT

REACTIONS (1)
  - Gastric cancer [Unknown]
